FAERS Safety Report 4464897-1 (Version None)
Quarter: 2004Q4

REPORT INFORMATION
  Report Type: 
  Country: None (occurrence: None)
  Receive Date: 20041004
  Receipt Date: 20040202
  Transmission Date: 20050328
  Serious: No
  Sender: FDA-Public Use
  Company Number: 361810

PATIENT
  Sex: Female

DRUGS (11)
  1. COREG [Suspect]
     Dosage: 6.25MG TWICE PER DAY
     Route: 048
  2. SPIRONOLACTONE [Concomitant]
  3. ZOCOR [Concomitant]
  4. ZETIA [Concomitant]
  5. FOSAMAX [Concomitant]
  6. GLUCOPHAGE [Concomitant]
  7. DIGOXIN [Concomitant]
  8. LASIX [Concomitant]
  9. ADVAIR DISKUS 100/50 [Concomitant]
  10. LISINOPRIL [Concomitant]
  11. ECOTRIN [Concomitant]

REACTIONS (1)
  - HAIR COLOUR CHANGES [None]
